FAERS Safety Report 7476629-3 (Version None)
Quarter: 2011Q2

REPORT INFORMATION
  Report Type: 
  Country: None (occurrence: None)
  Receive Date: 20110512
  Receipt Date: 20110510
  Transmission Date: 20111010
  Serious: No
  Sender: FDA-Public Use
  Company Number: US-TEVA-281088USA

PATIENT
  Sex: Male
  Weight: 66.284 kg

DRUGS (4)
  1. PROAIR HFA [Suspect]
     Indication: CHRONIC OBSTRUCTIVE PULMONARY DISEASE
     Route: 055
     Dates: start: 20110506
  2. TIOTROPIUM BROMIDE [Concomitant]
  3. LISINOPRIL [Concomitant]
  4. TERAZOSIN HYDROCHLORIDE [Concomitant]

REACTIONS (1)
  - COUGH [None]
